FAERS Safety Report 17035296 (Version 1)
Quarter: 2019Q4

REPORT INFORMATION
  Report Type: Report from Study
  Country: IT (occurrence: IT)
  Receive Date: 20191115
  Receipt Date: 20191115
  Transmission Date: 20200122
  Serious: Yes (Other)
  Sender: FDA-Public Use
  Company Number: IT-GILEAD-2019-0437383

PATIENT
  Age: 51 Year
  Sex: Male

DRUGS (1)
  1. SOFOSBUVIR W/VELPATASVIR [Suspect]
     Active Substance: SOFOSBUVIR\VELPATASVIR
     Indication: HEPATITIS C
     Dosage: 500 MG, QD
     Route: 048
     Dates: start: 20190906

REACTIONS (1)
  - Abscess [Recovering/Resolving]

NARRATIVE: CASE EVENT DATE: 20191014
